FAERS Safety Report 9402294 (Version 2)
Quarter: 2013Q3

REPORT INFORMATION
  Report Type: Spontaneous
  Country: US (occurrence: US)
  Receive Date: 20130716
  Receipt Date: 20130814
  Transmission Date: 20140515
  Serious: Yes (Hospitalization, Other)
  Sender: FDA-Public Use
  Company Number: PHEH2013US014724

PATIENT
  Sex: Female

DRUGS (4)
  1. EXFORGE [Suspect]
     Dosage: UNK (320/10 MG), UNK
  2. EXFORGE [Suspect]
     Dosage: 2 DF (320/5 MG), UNK
  3. XANAX [Concomitant]
  4. TOPIRAMATE [Concomitant]

REACTIONS (5)
  - Blood pressure increased [Unknown]
  - Cardiac failure congestive [Unknown]
  - Foot fracture [Unknown]
  - Fatigue [Unknown]
  - Incorrect dose administered [Unknown]
